FAERS Safety Report 7606662-X (Version None)
Quarter: 2011Q3

REPORT INFORMATION
  Report Type: 
  Country: None (occurrence: None)
  Receive Date: 20110713
  Receipt Date: 20110706
  Transmission Date: 20111222
  Serious: Yes (Other)
  Sender: FDA-Public Use
  Company Number: US-ROCHE-724887

PATIENT
  Sex: Female

DRUGS (2)
  1. MIRCETTE [Concomitant]
  2. ACCUTANE [Suspect]
     Indication: ACNE
     Route: 065
     Dates: start: 20030101, end: 20051101

REACTIONS (5)
  - RECTAL HAEMORRHAGE [None]
  - RECTAL POLYP [None]
  - COLITIS ULCERATIVE [None]
  - NAUSEA [None]
  - ABDOMINAL PAIN [None]
